FAERS Safety Report 13864532 (Version 1)
Quarter: 2017Q3

REPORT INFORMATION
  Report Type: Spontaneous
  Country: JP (occurrence: JP)
  Receive Date: 20170814
  Receipt Date: 20170814
  Transmission Date: 20171127
  Serious: Yes (Other)
  Sender: FDA-Public Use
  Company Number: JP-LUPIN PHARMACEUTICALS INC.-2017-04476

PATIENT
  Age: 6 Decade
  Sex: Female

DRUGS (2)
  1. TOPIRAMATE. [Suspect]
     Active Substance: TOPIRAMATE
     Indication: EPILEPSY
     Dosage: UNK
     Route: 065
  2. TOPIRAMATE. [Suspect]
     Active Substance: TOPIRAMATE
     Dosage: DOSE REDUCED
     Route: 065

REACTIONS (6)
  - Bacteriuria [Unknown]
  - Pyuria [Unknown]
  - Hydronephrosis [Unknown]
  - Haematuria [Unknown]
  - Renal impairment [Unknown]
  - Ureterolithiasis [Recovered/Resolved]
